FAERS Safety Report 21966344 (Version 2)
Quarter: 2023Q1

REPORT INFORMATION
  Report Type: Spontaneous
  Country: FR (occurrence: FR)
  Receive Date: 20230208
  Receipt Date: 20230215
  Transmission Date: 20230418
  Serious: Yes (Other)
  Sender: FDA-Public Use
  Company Number: FR-AFSSAPS-RS2023000071

PATIENT
  Age: 45 Year
  Sex: Female

DRUGS (3)
  1. LETROZOLE [Suspect]
     Active Substance: LETROZOLE
     Indication: Breast cancer
     Dosage: UNK
     Route: 048
     Dates: start: 202101
  2. TAMOXIFEN [Suspect]
     Active Substance: TAMOXIFEN
     Indication: Breast cancer
     Dosage: UNK
     Route: 048
     Dates: start: 201212
  3. LEUPROLIDE [Suspect]
     Active Substance: LEUPROLIDE
     Indication: Breast cancer
     Dosage: UNK
     Route: 048
     Dates: start: 202101

REACTIONS (1)
  - Alopecia areata [Not Recovered/Not Resolved]
